FAERS Safety Report 6617524-9 (Version None)
Quarter: 2010Q1

REPORT INFORMATION
  Report Type: 
  Country: None (occurrence: None)
  Receive Date: 20100308
  Receipt Date: 20100226
  Transmission Date: 20100710
  Serious: Yes (Hospitalization)
  Sender: FDA-Public Use
  Company Number: FR-JNJFOC-20100300401

PATIENT
  Age: 70 Year
  Sex: Female

DRUGS (2)
  1. RISPERDAL CONSTA [Suspect]
     Indication: DRUG USE FOR UNKNOWN INDICATION
     Route: 030
  2. LOXAPAC [Concomitant]
     Route: 065

REACTIONS (5)
  - ALTERED STATE OF CONSCIOUSNESS [None]
  - DRUG ADMINISTRATION ERROR [None]
  - OVERDOSE [None]
  - PNEUMONIA ASPIRATION [None]
  - SPEECH DISORDER [None]
